FAERS Safety Report 15011807 (Version 1)
Quarter: 2018Q2

REPORT INFORMATION
  Report Type: Spontaneous
  Country: KR (occurrence: KR)
  Receive Date: 20180614
  Receipt Date: 20180614
  Transmission Date: 20180711
  Serious: Yes (Other)
  Sender: FDA-Public Use
  Company Number: KR-GUERBET-KR-20180016

PATIENT
  Age: 67 Year
  Sex: Male

DRUGS (4)
  1. CISPLATIN. [Concomitant]
     Active Substance: CISPLATIN
     Indication: TRANSCATHETER ARTERIAL CHEMOEMBOLISATION
     Route: 013
  2. CISPLATIN. [Concomitant]
     Active Substance: CISPLATIN
     Indication: TRANSCATHETER ARTERIAL CHEMOEMBOLISATION
     Route: 013
  3. GELFOAM [Concomitant]
     Active Substance: GELATIN\THROMBIN HUMAN
     Indication: TRANSCATHETER ARTERIAL CHEMOEMBOLISATION
     Route: 013
  4. LIPIODOL [Suspect]
     Active Substance: ETHIODIZED OIL
     Indication: TRANSCATHETER ARTERIAL CHEMOEMBOLISATION
     Route: 013

REACTIONS (2)
  - Cholangitis acute [Recovered/Resolved]
  - Tumour necrosis [Recovered/Resolved]
